FAERS Safety Report 11068408 (Version 2)
Quarter: 2015Q2

REPORT INFORMATION
  Report Type: Spontaneous
  Country: US (occurrence: US)
  Receive Date: 20150427
  Receipt Date: 20150504
  Transmission Date: 20150821
  Serious: Yes (Hospitalization)
  Sender: FDA-Public Use
  Company Number: US-UNITED THERAPEUTICS-UNT-2015-004577

PATIENT
  Sex: Male

DRUGS (2)
  1. REMODULIN [Suspect]
     Active Substance: TREPROSTINIL
     Indication: PULMONARY ARTERIAL HYPERTENSION
     Dosage: 0.00805 ?G/KG, CONTINUING
     Route: 058
     Dates: start: 20150401
  2. REMODULIN [Suspect]
     Active Substance: TREPROSTINIL
     Dosage: 0.0103 ?G/KG, CONTINUING
     Route: 058

REACTIONS (4)
  - Drug titration error [Unknown]
  - Chest pain [Unknown]
  - Toxicity to various agents [Unknown]
  - Dyspnoea [Unknown]

NARRATIVE: CASE EVENT DATE: 20150416
